FAERS Safety Report 10524736 (Version 2)
Quarter: 2015Q1

REPORT INFORMATION
  Report Type: Spontaneous
  Country: JP (occurrence: JP)
  Receive Date: 20141017
  Receipt Date: 20150106
  Transmission Date: 20150720
  Serious: Yes (Hospitalization)
  Sender: FDA-Public Use
  Company Number: JP-BAYER-2014-151791

PATIENT
  Age: 71 Year
  Sex: Female

DRUGS (2)
  1. PANALDINE [Concomitant]
     Active Substance: TICLOPIDINE HYDROCHLORIDE
     Dosage: UNK
     Route: 048
  2. BAYASPIRIN [Suspect]
     Active Substance: ASPIRIN
     Dosage: UNK
     Route: 048

REACTIONS (6)
  - Brain stem infarction [None]
  - VIIth nerve paralysis [None]
  - Subdural haematoma [None]
  - Ataxia [None]
  - Vestibular neuronitis [None]
  - Deafness unilateral [None]

NARRATIVE: CASE EVENT DATE: 20140512
